FAERS Safety Report 25857590 (Version 1)
Quarter: 2025Q3

REPORT INFORMATION
  Report Type: Spontaneous
  Country: EU (occurrence: EU)
  Receive Date: 20250929
  Receipt Date: 20250929
  Transmission Date: 20251021
  Serious: Yes (Other)
  Sender: AUROBINDO
  Company Number: EU-AUROBINDO-AUR-APL-2025-048109

PATIENT
  Age: 66 Year
  Sex: Female

DRUGS (2)
  1. CEFIXIME [Suspect]
     Active Substance: CEFIXIME
     Indication: Bronchitis
     Dosage: 200 MILLIGRAM, TWO TIMES A DAY
     Route: 048
  2. AZATHIOPRINE [Concomitant]
     Active Substance: AZATHIOPRINE
     Indication: Product used for unknown indication
     Route: 065

REACTIONS (1)
  - Oromandibular dystonia [Recovered/Resolved]
